FAERS Safety Report 18261452 (Version 1)
Quarter: 2020Q3

REPORT INFORMATION
  Report Type: Report from Study
  Country: US (occurrence: US)
  Receive Date: 20200914
  Receipt Date: 20200914
  Transmission Date: 20201103
  Serious: Yes (Other)
  Sender: FDA-Public Use
  Company Number: NVSC2020US247984

PATIENT
  Age: 33 Year
  Sex: Male

DRUGS (1)
  1. ENTRESTO [Suspect]
     Active Substance: SACUBITRIL\VALSARTAN
     Indication: PRODUCT USED FOR UNKNOWN INDICATION
     Dosage: 200 MG, BID (97/103 MG, TWICE A DAY)
     Route: 048

REACTIONS (2)
  - Cardiomyopathy [Unknown]
  - Weight decreased [Unknown]

NARRATIVE: CASE EVENT DATE: 201910
